FAERS Safety Report 12002079 (Version 3)
Quarter: 2016Q2

REPORT INFORMATION
  Report Type: Report from Study
  Country: US (occurrence: US)
  Receive Date: 20160204
  Receipt Date: 20160404
  Transmission Date: 20160815
  Serious: Yes (Death, Hospitalization, Other)
  Sender: FDA-Public Use
  Company Number: US-GILEAD-2016-0195787

PATIENT
  Age: 67 Year
  Sex: Male

DRUGS (11)
  1. POTASSIUM CHLORIDE. [Concomitant]
     Active Substance: POTASSIUM CHLORIDE
  2. GLIPIZIDE. [Concomitant]
     Active Substance: GLIPIZIDE
  3. AMBRISENTAN [Suspect]
     Active Substance: AMBRISENTAN
     Indication: PULMONARY HYPERTENSION
     Dosage: 10 MG, QD
     Route: 048
     Dates: start: 201309
  4. ASPIRIN                            /00002701/ [Concomitant]
     Active Substance: ASPIRIN
  5. REMODULIN [Suspect]
     Active Substance: TREPROSTINIL
     Indication: PULMONARY ARTERIAL HYPERTENSION
     Dosage: UNK
     Route: 065
     Dates: start: 201506
  6. SILDENAFIL. [Concomitant]
     Active Substance: SILDENAFIL
  7. ALLOPURINOL. [Concomitant]
     Active Substance: ALLOPURINOL
  8. FUROSEMIDE. [Concomitant]
     Active Substance: FUROSEMIDE
  9. REMODULIN [Suspect]
     Active Substance: TREPROSTINIL
     Dosage: 56 NG/KG/ML
     Route: 058
  10. AMIODARONE [Concomitant]
     Active Substance: AMIODARONE
  11. KCL [Concomitant]
     Active Substance: POTASSIUM CHLORIDE

REACTIONS (8)
  - Diarrhoea [Unknown]
  - Headache [Unknown]
  - Therapy change [Unknown]
  - Nausea [Unknown]
  - Pulmonary hypertension [Unknown]
  - Cor pulmonale [Fatal]
  - Abdominal pain [Unknown]
  - Vomiting [Unknown]

NARRATIVE: CASE EVENT DATE: 20151204
